FAERS Safety Report 23315860 (Version 2)
Quarter: 2024Q1

REPORT INFORMATION
  Report Type: Report from Study
  Country: CN (occurrence: CN)
  Receive Date: 20231219
  Receipt Date: 20240117
  Transmission Date: 20240410
  Serious: No
  Sender: FDA-Public Use
  Company Number: CN-PFIZER INC-PV202300203883

PATIENT
  Age: 92 Year
  Sex: Male

DRUGS (55)
  1. NIRMATRELVIR\RITONAVIR [Suspect]
     Active Substance: NIRMATRELVIR\RITONAVIR
     Indication: COVID-19
     Dosage: [NIRMATRELVIR 300 MG]/[RITONAVIR 100 MG], 2X/DAY, ROUTE: PC
     Dates: start: 20220502, end: 20220505
  2. NIRMATRELVIR\RITONAVIR [Suspect]
     Active Substance: NIRMATRELVIR\RITONAVIR
     Dosage: [NIRMATRELVIR 150 MG]/[RITONAVIR 100 MG], 2X/DAY, ROUTE: PC
     Dates: start: 20220506, end: 20220510
  3. ENTERAL NUTRITIONAL SUSPENSION (SP) [Concomitant]
     Indication: Nutritional supplementation
     Dosage: UNK (NASOGASTRIC)
     Dates: start: 20220430, end: 20220501
  4. ENTERAL NUTRITIONAL SUSPENSION (SP) [Concomitant]
     Dosage: UNK (NASOGASTRIC)
     Dates: start: 20220501, end: 20220501
  5. ENTERAL NUTRITIONAL SUSPENSION (SP) [Concomitant]
     Dosage: UNK (NASOGASTRIC)
     Dates: start: 20220501, end: 20220510
  6. AMBROXOL HYDROCHLORIDE [Concomitant]
     Active Substance: AMBROXOL HYDROCHLORIDE
     Indication: Mucolytic treatment
     Dosage: UNK
     Route: 042
     Dates: start: 20220430, end: 20220430
  7. AMBROXOL HYDROCHLORIDE [Concomitant]
     Active Substance: AMBROXOL HYDROCHLORIDE
     Dosage: UNK
     Route: 042
     Dates: start: 20220430, end: 20220510
  8. PIPERACILLIN SODIUM\TAZOBACTAM SODIUM [Concomitant]
     Active Substance: PIPERACILLIN SODIUM\TAZOBACTAM SODIUM
     Indication: Anti-infective therapy
     Dosage: UNK
     Route: 042
     Dates: start: 20220430, end: 20220502
  9. OXYGEN [Concomitant]
     Active Substance: OXYGEN
     Indication: COVID-19
     Dosage: INHALE
     Route: 055
     Dates: start: 20220430, end: 20220509
  10. TAMSULOSIN HYDROCHLORIDE [Concomitant]
     Active Substance: TAMSULOSIN HYDROCHLORIDE
     Indication: Drug therapy
     Dosage: UNK, SUSTAINED-RELEASE
     Route: 048
     Dates: start: 20220430, end: 20220510
  11. TAMSULOSIN HYDROCHLORIDE [Concomitant]
     Active Substance: TAMSULOSIN HYDROCHLORIDE
     Dosage: UNK, SUSTAINED-RELEASE
     Route: 048
     Dates: start: 20220502, end: 20220502
  12. DOMPERIDONE [Concomitant]
     Active Substance: DOMPERIDONE
     Indication: Gastrointestinal motility disorder
     Dosage: UNK
     Route: 048
     Dates: start: 20220501, end: 20220501
  13. DOMPERIDONE [Concomitant]
     Active Substance: DOMPERIDONE
     Dosage: UNK
     Route: 048
     Dates: start: 20220501, end: 20220510
  14. DOXOFYLLINE SODIUM CHLORIDE INJECTION [Concomitant]
     Indication: Asthma prophylaxis
     Dosage: UNK
     Route: 042
     Dates: start: 20220501, end: 20220510
  15. MEROPENEM [Concomitant]
     Active Substance: MEROPENEM
     Indication: Anti-infective therapy
     Dosage: UNK
     Route: 042
     Dates: start: 20220502, end: 20220502
  16. MEROPENEM [Concomitant]
     Active Substance: MEROPENEM
     Dosage: UNK
     Route: 042
     Dates: start: 20220502, end: 20220508
  17. METHYLPREDNISOLONE SODIUM SUCCINATE [Concomitant]
     Active Substance: METHYLPREDNISOLONE SODIUM SUCCINATE
     Indication: COVID-19
     Dosage: UNK
     Route: 042
     Dates: start: 20220502, end: 20220502
  18. METHYLPREDNISOLONE SODIUM SUCCINATE [Concomitant]
     Active Substance: METHYLPREDNISOLONE SODIUM SUCCINATE
     Dosage: UNK
     Route: 042
     Dates: start: 20220502, end: 20220506
  19. METHYLPREDNISOLONE SODIUM SUCCINATE [Concomitant]
     Active Substance: METHYLPREDNISOLONE SODIUM SUCCINATE
     Dosage: UNK
     Route: 042
     Dates: start: 20220506, end: 20220508
  20. PANTOPRAZOLE SODIUM [Concomitant]
     Active Substance: PANTOPRAZOLE SODIUM
     Indication: Prophylaxis against gastrointestinal ulcer
     Dosage: UNK, ENTERIC-COATED
     Route: 048
     Dates: start: 20220502, end: 20220502
  21. PANTOPRAZOLE SODIUM [Concomitant]
     Active Substance: PANTOPRAZOLE SODIUM
     Indication: Hyperchlorhydria
     Dosage: UNK, ENTERIC-COATED
     Route: 048
     Dates: start: 20220502, end: 20220510
  22. HEPARIN SODIUM [Concomitant]
     Active Substance: HEPARIN SODIUM
     Indication: COVID-19
     Dosage: UNK
     Route: 058
     Dates: start: 20220502, end: 20220502
  23. HEPARIN SODIUM [Concomitant]
     Active Substance: HEPARIN SODIUM
     Dosage: UNK
     Route: 058
     Dates: start: 20220502, end: 20220504
  24. FINASTERIDE [Concomitant]
     Active Substance: FINASTERIDE
     Indication: Drug therapy
     Dosage: UNK
     Route: 048
     Dates: start: 20220502, end: 20220502
  25. FINASTERIDE [Concomitant]
     Active Substance: FINASTERIDE
     Dosage: UNK
     Route: 048
     Dates: start: 20220502, end: 20220510
  26. IPRATROPIUM BROMIDE [Concomitant]
     Active Substance: IPRATROPIUM BROMIDE\IPRATROPIUM BROMIDE ANHYDROUS
     Indication: Asthma prophylaxis
     Dosage: UNK, SOLUTION FOR INHALATION
     Route: 055
     Dates: start: 20220502, end: 20220502
  27. IPRATROPIUM BROMIDE [Concomitant]
     Active Substance: IPRATROPIUM BROMIDE\IPRATROPIUM BROMIDE ANHYDROUS
     Dosage: UNK, SOLUTION FOR INHALATION
     Route: 055
     Dates: start: 20220502, end: 20220503
  28. CHYMOTRYPSIN [Concomitant]
     Active Substance: CHYMOTRYPSIN
     Indication: Mucolytic treatment
     Dosage: UNK, INHALATION
     Route: 055
     Dates: start: 20220502, end: 20220502
  29. CHYMOTRYPSIN [Concomitant]
     Active Substance: CHYMOTRYPSIN
     Dosage: UNK, INHALATION
     Route: 055
     Dates: start: 20220502, end: 20220503
  30. BUDESONIDE [Concomitant]
     Active Substance: BUDESONIDE
     Indication: Inflammation
     Dosage: UNK, INHALATION SUSPENSION
     Route: 055
     Dates: start: 20220502, end: 20220502
  31. BUDESONIDE [Concomitant]
     Active Substance: BUDESONIDE
     Dosage: UNK, INHALATION SUSPENSION
     Route: 055
     Dates: start: 20220502, end: 20220503
  32. NADROPARIN CALCIUM [Concomitant]
     Active Substance: NADROPARIN CALCIUM
     Indication: COVID-19
     Dosage: UNK
     Route: 058
     Dates: start: 20220504, end: 20220505
  33. NADROPARIN CALCIUM [Concomitant]
     Active Substance: NADROPARIN CALCIUM
     Dosage: UNK
     Route: 058
     Dates: start: 20220509, end: 20220509
  34. NADROPARIN CALCIUM [Concomitant]
     Active Substance: NADROPARIN CALCIUM
     Dosage: UNK
     Route: 058
     Dates: start: 20220509, end: 20220510
  35. TAN RE QING [Concomitant]
     Indication: COVID-19
     Dosage: UNK
     Route: 042
     Dates: start: 20220504, end: 20220510
  36. THYMUS [THYMUS SPP.] [Concomitant]
     Indication: COVID-19
     Dosage: UNK
     Route: 058
     Dates: start: 20220505, end: 20220510
  37. DOPAMINE HYDROCHLORIDE [Concomitant]
     Active Substance: DOPAMINE HYDROCHLORIDE
     Indication: Hypotension
     Dosage: UNK
     Route: 042
     Dates: start: 20220430, end: 20220430
  38. FUROSEMIDE [Concomitant]
     Active Substance: FUROSEMIDE
     Indication: Polyuria
     Dosage: UNK
     Route: 042
     Dates: start: 20220501, end: 20220501
  39. FUROSEMIDE [Concomitant]
     Active Substance: FUROSEMIDE
     Dosage: UNK
     Route: 042
     Dates: start: 20220504, end: 20220504
  40. FUROSEMIDE [Concomitant]
     Active Substance: FUROSEMIDE
     Dosage: UNK
     Route: 042
     Dates: start: 20220509, end: 20220509
  41. CHLORHEXIDINE [Concomitant]
     Active Substance: CHLORHEXIDINE\CHLORHEXIDINE GLUCONATE
     Indication: Therapeutic gargle
     Dosage: UNK (GARGLE COMPUND)
     Route: 050
     Dates: start: 20220505
  42. CEFTAZIDIME [Concomitant]
     Active Substance: CEFTAZIDIME
     Indication: Anti-infective therapy
     Dosage: UNK
     Route: 042
     Dates: start: 20220509, end: 20220509
  43. CEFTAZIDIME [Concomitant]
     Active Substance: CEFTAZIDIME
     Dosage: UNK
     Route: 042
     Dates: start: 20220509, end: 20220510
  44. AMIKACIN SULFATE [Concomitant]
     Active Substance: AMIKACIN SULFATE
     Indication: Anti-infective therapy
     Dosage: UNK
     Route: 042
     Dates: start: 20220510, end: 20220510
  45. DOXOFYLLINE [Concomitant]
     Active Substance: DOXOFYLLINE
     Indication: Asthma prophylaxis
     Dosage: UNK
     Route: 042
     Dates: start: 20220501, end: 20220501
  46. ALBUTEROL SULFATE [Concomitant]
     Active Substance: ALBUTEROL SULFATE
     Indication: Asthma prophylaxis
     Dosage: UNK (INHALED AEROSOL)
     Route: 055
     Dates: start: 20220509
  47. SODIUM POLYSTYRENE SULFONATE [Concomitant]
     Active Substance: SODIUM POLYSTYRENE SULFONATE
     Indication: Hyperkalaemia
     Dosage: UNK (POWDER)
     Route: 048
     Dates: start: 20220509, end: 20220509
  48. TIGECYCLINE [Concomitant]
     Active Substance: TIGECYCLINE
     Indication: Anti-infective therapy
     Dosage: UNK
     Route: 042
     Dates: start: 20220509, end: 20220509
  49. SODIUM CHLORIDE [Concomitant]
     Active Substance: SODIUM CHLORIDE
     Indication: Electrolyte substitution therapy
     Dosage: UNK
     Route: 042
     Dates: start: 20220509, end: 20220509
  50. EPINEPHRINE [Concomitant]
     Active Substance: EPINEPHRINE
     Indication: Drug therapy
     Dosage: UNK
     Route: 042
     Dates: start: 20220510, end: 20220510
  51. SODIUM BICARBONATE [Concomitant]
     Active Substance: SODIUM BICARBONATE
     Indication: Acidosis
     Dosage: UNK
     Route: 042
     Dates: start: 20220510, end: 20220510
  52. NIKETHAMIDE [Concomitant]
     Active Substance: NIKETHAMIDE
     Indication: Drug therapy
     Dosage: UNK
     Route: 042
     Dates: start: 20220510, end: 20220510
  53. LOBELINE [LOBELINE HYDROCHLORIDE] [Concomitant]
     Indication: Drug therapy
     Dosage: UNK
     Route: 042
     Dates: start: 20220510, end: 20220510
  54. NOREPINEPHRINE BITARTRATE [Concomitant]
     Active Substance: NOREPINEPHRINE BITARTRATE
     Indication: Hypotension
     Dosage: UNK
     Route: 042
     Dates: start: 20220510, end: 20220510
  55. ATROPINE SULFATE [Concomitant]
     Active Substance: ATROPINE SULFATE
     Indication: Heart rate decreased
     Dosage: UNK
     Route: 042
     Dates: start: 20220510, end: 20220510

REACTIONS (1)
  - Overdose [Unknown]
